FAERS Safety Report 12896835 (Version 1)
Quarter: 2016Q4

REPORT INFORMATION
  Report Type: Spontaneous
  Country: FR (occurrence: FR)
  Receive Date: 20161031
  Receipt Date: 20161031
  Transmission Date: 20170207
  Serious: Yes (Hospitalization)
  Sender: FDA-Public Use
  Company Number: FR-PFIZER INC-2016500553

PATIENT
  Age: 82 Year
  Sex: Female

DRUGS (5)
  1. NOVOMIX [Concomitant]
     Active Substance: INSULIN ASPART
  2. CORTANCYL [Concomitant]
     Active Substance: PREDNISONE
  3. PAMIDRONATE DISODIUM. [Suspect]
     Active Substance: PAMIDRONATE DISODIUM
     Dosage: 90 MG, 1X/DAY
     Route: 041
     Dates: start: 20160927, end: 20160927
  4. GALVUS [Concomitant]
     Active Substance: VILDAGLIPTIN
  5. METHOTREXATE. [Concomitant]
     Active Substance: METHOTREXATE

REACTIONS (2)
  - Vessel puncture site inflammation [Recovered/Resolved]
  - Injection site thrombosis [Recovered/Resolved]

NARRATIVE: CASE EVENT DATE: 20160927
